FAERS Safety Report 17216892 (Version 1)
Quarter: 2019Q4

REPORT INFORMATION
  Report Type: Report from Study
  Country: None (occurrence: US)
  Receive Date: 20191231
  Receipt Date: 20191231
  Transmission Date: 20200122
  Serious: Yes (Hospitalization, Other)
  Sender: FDA-Public Use
  Company Number: US-ABBVIE-19K-163-2719808-00

PATIENT
  Age: 16 Year
  Sex: Male

DRUGS (12)
  1. HUMIRA [Suspect]
     Active Substance: ADALIMUMAB
     Indication: HIDRADENITIS
     Route: 058
     Dates: start: 201711, end: 201801
  2. HUMIRA [Suspect]
     Active Substance: ADALIMUMAB
     Route: 058
     Dates: start: 201906, end: 201908
  3. RIFAMPIN. [Concomitant]
     Active Substance: RIFAMPIN
     Indication: WOUND
  4. PROTOPIC [Concomitant]
     Active Substance: TACROLIMUS
     Indication: WOUND
  5. HUMIRA [Suspect]
     Active Substance: ADALIMUMAB
     Indication: CHRONIC RECURRENT MULTIFOCAL OSTEOMYELITIS
     Route: 058
     Dates: start: 201908, end: 201912
  6. LIDOCAINE. [Concomitant]
     Active Substance: LIDOCAINE
     Indication: WOUND
  7. SILVADENE [Concomitant]
     Active Substance: SILVER SULFADIAZINE
     Indication: WOUND
  8. HUMIRA [Suspect]
     Active Substance: ADALIMUMAB
     Indication: CHRONIC RECURRENT MULTIFOCAL OSTEOMYELITIS
     Route: 058
     Dates: start: 201801, end: 201806
  9. HUMIRA [Suspect]
     Active Substance: ADALIMUMAB
     Route: 058
     Dates: start: 201806, end: 201906
  10. HUMIRA [Suspect]
     Active Substance: ADALIMUMAB
     Indication: HIDRADENITIS
     Route: 058
     Dates: start: 201912
  11. FLAGYL [Concomitant]
     Active Substance: METRONIDAZOLE\METRONIDAZOLE HYDROCHLORIDE
     Indication: WOUND
  12. KEFLEX [Concomitant]
     Active Substance: CEPHALEXIN
     Indication: WOUND

REACTIONS (6)
  - Genital ulceration [Recovering/Resolving]
  - Procedural pain [Unknown]
  - Hidradenitis [Not Recovered/Not Resolved]
  - Depression [Unknown]
  - Off label use [Not Recovered/Not Resolved]
  - Injection site pain [Recovered/Resolved]

NARRATIVE: CASE EVENT DATE: 201711
